FAERS Safety Report 9241754 (Version 3)
Quarter: 2013Q2

REPORT INFORMATION
  Report Type: Spontaneous
  Country: US (occurrence: US)
  Receive Date: 20130419
  Receipt Date: 20130531
  Transmission Date: 20140414
  Serious: Yes (Death, Life-Threatening, Hospitalization, Other)
  Sender: FDA-Public Use
  Company Number: US-ACTELION-A-US2013-81728

PATIENT
  Age: 73 Year
  Sex: Male

DRUGS (6)
  1. VELETRI [Suspect]
     Indication: PULMONARY ARTERIAL HYPERTENSION
     Dosage: 0 NG/KG, UNK
     Route: 042
     Dates: end: 20130404
  2. VELETRI [Suspect]
     Dosage: 20 NG/KG, PER MIN
     Route: 042
     Dates: start: 20120213
  3. TRACLEER [Suspect]
     Indication: PULMONARY ARTERIAL HYPERTENSION
     Dosage: 125 MG, BID
     Route: 048
     Dates: start: 20110923, end: 20130405
  4. TRACLEER [Suspect]
     Dosage: 62.5 MG, BID
     Route: 048
     Dates: start: 201109
  5. COUMADIN [Concomitant]
  6. FLOLAN [Concomitant]

REACTIONS (7)
  - Pulmonary arterial hypertension [Fatal]
  - Urinary incontinence [Fatal]
  - Disorientation [Fatal]
  - Confusional state [Fatal]
  - Device issue [Fatal]
  - Device malfunction [Fatal]
  - Disease progression [Unknown]
